FAERS Safety Report 18480109 (Version 1)
Quarter: 2020Q4

REPORT INFORMATION
  Report Type: Spontaneous
  Country: GB (occurrence: US)
  Receive Date: 20201109
  Receipt Date: 20201109
  Transmission Date: 20210114
  Serious: Yes (Death, Other)
  Sender: FDA-Public Use
  Company Number: US-ASTELLAS-2020US039524

PATIENT
  Age: 58 Year
  Sex: Female

DRUGS (1)
  1. TARCEVA [Suspect]
     Active Substance: ERLOTINIB HYDROCHLORIDE
     Indication: PRODUCT USED FOR UNKNOWN INDICATION
     Dosage: 100 MG, UNKNOWN FREQ. (ALSO REPORTED AS OTHER)
     Route: 048
     Dates: start: 202006, end: 202009

REACTIONS (1)
  - Death [Fatal]

NARRATIVE: CASE EVENT DATE: 20200927
